FAERS Safety Report 5821101-7 (Version None)
Quarter: 2008Q3

REPORT INFORMATION
  Report Type: 
  Country: None (occurrence: None)
  Receive Date: 20080724
  Receipt Date: 20080718
  Transmission Date: 20090109
  Serious: Yes (Other)
  Sender: FDA-Public Use
  Company Number: US-WATSON-2008-04461

PATIENT

DRUGS (1)
  1. CEFAZOLIN SODIUM                   09 [Suspect]
     Indication: DRUG USE FOR UNKNOWN INDICATION
     Dosage: 6 G DAILY
     Route: 042

REACTIONS (2)
  - CEREBRAL HAEMORRHAGE [None]
  - HEMIPLEGIA [None]
